FAERS Safety Report 23034104 (Version 1)
Quarter: 2023Q4

REPORT INFORMATION
  Report Type: Spontaneous
  Country: US (occurrence: None)
  Receive Date: 20231005
  Receipt Date: 20231005
  Transmission Date: 20240110
  Serious: Yes (Death)
  Sender: FDA-Public Use
  Company Number: None

PATIENT
  Sex: Male
  Weight: 71.51 kg

DRUGS (15)
  1. REVLIMID [Suspect]
     Active Substance: LENALIDOMIDE
     Indication: Plasma cell myeloma
     Dosage: FREQUENCY : DAILY;?
     Route: 048
     Dates: start: 20230627, end: 20230922
  2. Allegra Allergy 60 mg tablet [Concomitant]
     Dates: start: 20211001, end: 20230923
  3. aspirin 81 mg chewable tablet [Concomitant]
     Dates: start: 20211001, end: 20230923
  4. Centrum Silver 400 mcg-250 mcg chewable tablet [Concomitant]
     Dates: start: 20211001, end: 20220629
  5. dicyclomine 10 mg capsule [Concomitant]
     Dates: start: 20230414
  6. fenofibrate 160 mg tablet [Concomitant]
     Dates: start: 20211001
  7. Lasix 40 mg tablet [Concomitant]
     Dates: start: 20230912
  8. LOSARTAN [Concomitant]
     Active Substance: LOSARTAN
     Dates: start: 20211001
  9. mometasone 50 mcg/actuation nasal spray [Concomitant]
     Dates: start: 20211001
  10. Niaspan 1,000 mg tablet,extended release [Concomitant]
     Dates: start: 20211001
  11. Paxlovid 300 mg (150 mg x 2)-100 mg tablets in a dose pack [Concomitant]
     Dates: start: 20230723
  12. potassium chloride 20 mEq oral packet [Concomitant]
     Dates: start: 20230919
  13. Questran Light 4 gram oral powder [Concomitant]
     Dates: start: 20230919
  14. Xanax 0.25 mg tablet [Concomitant]
     Dates: start: 20230919
  15. ZYRTEC [Concomitant]
     Active Substance: CETIRIZINE HYDROCHLORIDE
     Dates: start: 20211001

REACTIONS (1)
  - Death [None]
